FAERS Safety Report 23049688 (Version 1)
Quarter: 2023Q4

REPORT INFORMATION
  Report Type: Spontaneous
  Country: US (occurrence: None)
  Receive Date: 20231009
  Receipt Date: 20231009
  Transmission Date: 20240110
  Serious: Yes (Other)
  Sender: FDA-Public Use
  Company Number: None

PATIENT
  Age: 71 Year
  Sex: Female

DRUGS (11)
  1. ACTEMRA ACTPEN [Suspect]
     Active Substance: TOCILIZUMAB
     Indication: Rheumatoid arthritis
     Dosage: FREQUENCY : WEEKLY;?
     Route: 058
     Dates: start: 20230309, end: 20230918
  2. BUDESONIDE [Concomitant]
     Active Substance: BUDESONIDE
  3. OMEPRAZOLE [Concomitant]
     Active Substance: OMEPRAZOLE
  4. ENOXAPARIN [Concomitant]
     Active Substance: ENOXAPARIN
  5. NIFEDIPINE [Concomitant]
     Active Substance: NIFEDIPINE
  6. LEUCOVORIN [Concomitant]
     Active Substance: LEUCOVORIN\LEUCOVORIN CALCIUM
  7. ONDANSETRON [Concomitant]
     Active Substance: ONDANSETRON
  8. PREMARIN [Concomitant]
     Active Substance: ESTROGENS, CONJUGATED
  9. HYDROXYCHLOROQUINE [Concomitant]
     Active Substance: HYDROXYCHLOROQUINE
  10. METHOTREXATE [Concomitant]
     Active Substance: METHOTREXATE
  11. pyridostigmine^s [Concomitant]

REACTIONS (3)
  - Cough [None]
  - Fatigue [None]
  - Atypical mycobacterial infection [None]

NARRATIVE: CASE EVENT DATE: 20230916
